FAERS Safety Report 8976480 (Version 1)
Quarter: 2012Q4

REPORT INFORMATION
  Report Type: 
  Country: US (occurrence: US)
  Receive Date: 20121220
  Receipt Date: 20121220
  Transmission Date: 20130627
  Serious: Yes (Death)
  Sender: FDA-Public Use
  Company Number: US-SHIRE-ALL1-2012-06360

PATIENT
  Sex: Female

DRUGS (1)
  1. PENTASA [Suspect]
     Indication: COLITIS ULCERATIVE
     Dosage: 4000 mg, 1x/day:qd (500 mg 8 tabs daily)
     Route: 048
     Dates: end: 2012

REACTIONS (1)
  - Death [Fatal]
